FAERS Safety Report 13449540 (Version 1)
Quarter: 2017Q2

REPORT INFORMATION
  Report Type: Other
  Country: US (occurrence: US)
  Receive Date: 20170417
  Receipt Date: 20170417
  Transmission Date: 20170830
  Serious: Yes (Other)
  Sender: FDA-Public Use
  Company Number: US-BRECKENRIDGE PHARMACEUTICAL, INC.-1065446

PATIENT
  Age: 77 Year
  Sex: Female

DRUGS (6)
  1. OXCARBAZEPINE. [Suspect]
     Active Substance: OXCARBAZEPINE
  2. ASPIRIN. [Concomitant]
     Active Substance: ASPIRIN
  3. METOPROLOL. [Concomitant]
     Active Substance: METOPROLOL
  4. FUROSEMIDE. [Concomitant]
     Active Substance: FUROSEMIDE
  5. WARFARIN SODIUM. [Concomitant]
     Active Substance: WARFARIN SODIUM
  6. SIMVASTATIN. [Concomitant]
     Active Substance: SIMVASTATIN

REACTIONS (1)
  - Gaze palsy [Recovered/Resolved]
